FAERS Safety Report 11266416 (Version 1)
Quarter: 2015Q3

REPORT INFORMATION
  Report Type: Report from Study
  Country: CZ (occurrence: CZ)
  Receive Date: 20150713
  Receipt Date: 20150713
  Transmission Date: 20151125
  Serious: Yes (Other)
  Sender: FDA-Public Use
  Company Number: CZ-TEVA-577479ISR

PATIENT
  Age: 27 Year
  Sex: Male

DRUGS (7)
  1. OLANZAPINE. [Suspect]
     Active Substance: OLANZAPINE
     Dosage: 20 MILLIGRAM DAILY;
     Route: 048
  2. QUETIAPINE [Suspect]
     Active Substance: QUETIAPINE
     Dosage: 200 MILLIGRAM DAILY;
     Route: 048
  3. HALOPERIDOL. [Concomitant]
     Active Substance: HALOPERIDOL
     Dosage: 4.5 MILLIGRAM DAILY;
     Route: 048
  4. AMISULPRIDE [Suspect]
     Active Substance: AMISULPRIDE
     Dosage: 800 MILLIGRAM DAILY;
     Route: 048
  5. ARIPIPRAZOL [Concomitant]
     Active Substance: ARIPIPRAZOLE
     Dosage: 20 MILLIGRAM DAILY;
     Route: 048
  6. HALOPERIDOL. [Concomitant]
     Active Substance: HALOPERIDOL
  7. ARIPIPRAZOL [Concomitant]
     Active Substance: ARIPIPRAZOLE
     Dosage: 10 MILLIGRAM DAILY;
     Route: 048

REACTIONS (5)
  - Sedation [Unknown]
  - Lipid metabolism disorder [Unknown]
  - Drug abuse [Unknown]
  - Weight increased [Unknown]
  - Alcohol abuse [Unknown]
